FAERS Safety Report 8189628-3 (Version None)
Quarter: 2012Q1

REPORT INFORMATION
  Report Type: 
  Country: None (occurrence: None)
  Receive Date: 20120307
  Receipt Date: 20120228
  Transmission Date: 20120608
  Serious: Yes (Other)
  Sender: FDA-Public Use
  Company Number: FR-BRISTOL-MYERS SQUIBB COMPANY-16424939

PATIENT
  Age: 5 Decade
  Sex: Male

DRUGS (1)
  1. REYATAZ [Suspect]

REACTIONS (2)
  - NEPHROLITHIASIS [None]
  - RENAL COLIC [None]
